FAERS Safety Report 4842320-2 (Version None)
Quarter: 2005Q4

REPORT INFORMATION
  Report Type: 
  Country: None (occurrence: None)
  Receive Date: 20051129
  Receipt Date: 20051117
  Transmission Date: 20060501
  Serious: Yes (Other)
  Sender: FDA-Public Use
  Company Number: 2005PV003959

PATIENT
  Age: 53 Year
  Sex: Male
  Weight: 121.564 kg

DRUGS (11)
  1. BYETTA [Suspect]
     Indication: DIABETES MELLITUS NON-INSULIN-DEPENDENT
     Dosage: SEEI MAGE
     Dates: start: 20050907, end: 20051001
  2. BYETTA [Suspect]
     Indication: DIABETES MELLITUS NON-INSULIN-DEPENDENT
     Dosage: SEEI MAGE
     Dates: start: 20051001
  3. HYDROCHLOROTHIAZIDE [Suspect]
     Dosage: 25 MG; QD; ORAL
     Route: 048
     Dates: start: 20050907, end: 20051107
  4. ZOCOR [Suspect]
     Dosage: 20 MG; QD; PO
     Route: 048
     Dates: end: 20051107
  5. GLUCOTROL XL [Suspect]
     Dosage: 10 MG; QD; PO
     Route: 048
     Dates: end: 20051107
  6. LOTENSIN [Concomitant]
  7. GLUCOPHAGE ^BRISTOL-MYEARS SQUIBB^ [Concomitant]
  8. ASPIRIN [Concomitant]
  9. VIAGRA [Concomitant]
  10. ADVIL [Concomitant]
  11. MULTI-VITAMINS [Concomitant]

REACTIONS (1)
  - PANCREATITIS [None]
